FAERS Safety Report 9888909 (Version 1)
Quarter: 2014Q1

REPORT INFORMATION
  Report Type: Report from Study
  Country: DE (occurrence: DE)
  Receive Date: 20140211
  Receipt Date: 20140211
  Transmission Date: 20141002
  Serious: Yes (Other)
  Sender: FDA-Public Use
  Company Number: DE-UCBSA-111610

PATIENT
  Sex: Female

DRUGS (2)
  1. CERTOLIZUMAB [Suspect]
     Indication: RHEUMATOID ARTHRITIS
     Dosage: 200 MG
     Dates: start: 201209
  2. GOLIMUMAB [Suspect]

REACTIONS (1)
  - Trigeminal neuralgia [Unknown]
